FAERS Safety Report 20705610 (Version 1)
Quarter: 2022Q2

REPORT INFORMATION
  Report Type: Spontaneous
  Country: US (occurrence: US)
  Receive Date: 20220413
  Receipt Date: 20220413
  Transmission Date: 20220721
  Serious: Yes (Life-Threatening, Hospitalization, Other)
  Sender: FDA-Public Use
  Company Number: US-MLMSERVICE-20220330-3466883-1

PATIENT
  Age: 34 Year
  Sex: Male

DRUGS (2)
  1. VERAPAMIL [Suspect]
     Active Substance: VERAPAMIL HYDROCHLORIDE
     Indication: Hypertrophic cardiomyopathy
     Dosage: 1 DOSAGE FORM, BID
     Route: 065
  2. METOPROLOL [Concomitant]
     Active Substance: METOPROLOL
     Indication: Hypertrophic cardiomyopathy
     Dosage: 1 DOSAGE FORM, BID
     Route: 065

REACTIONS (7)
  - Lactic acidosis [Recovered/Resolved]
  - Nodal arrhythmia [Recovered/Resolved]
  - Hyperkalaemia [Recovered/Resolved]
  - Renal failure [Recovered/Resolved]
  - Drug intolerance [Recovered/Resolved]
  - Cardiogenic shock [Recovered/Resolved]
  - Haemodynamic instability [Recovered/Resolved]
